FAERS Safety Report 7586566-1 (Version None)
Quarter: 2011Q3

REPORT INFORMATION
  Report Type: 
  Country: None (occurrence: None)
  Receive Date: 20110701
  Receipt Date: 20110617
  Transmission Date: 20111222
  Serious: Yes (Other)
  Sender: FDA-Public Use
  Company Number: IT-BAYER-2011-052040

PATIENT
  Age: 57 Year
  Sex: Female

DRUGS (1)
  1. LASONIL GEL CM [Suspect]
     Indication: HAEMATOMA
     Dosage: UNK
     Route: 061
     Dates: start: 20110518, end: 20110519

REACTIONS (6)
  - PRURITUS [None]
  - BLISTER [None]
  - HYPERSENSITIVITY [None]
  - BURNING SENSATION [None]
  - PAIN IN EXTREMITY [None]
  - SWELLING [None]
